FAERS Safety Report 6554274-1 (Version None)
Quarter: 2010Q1

REPORT INFORMATION
  Report Type: 
  Country: None (occurrence: None)
  Receive Date: 20100127
  Receipt Date: 20100114
  Transmission Date: 20100710
  Serious: Yes (Other)
  Sender: FDA-Public Use
  Company Number: DK-WATSON-2010-00782

PATIENT
  Sex: Female

DRUGS (4)
  1. SIMVASTATIN [Suspect]
     Indication: BLOOD CHOLESTEROL
     Dosage: 40 MG, DAILY
  2. TRILAFON                           /00023401/ [Suspect]
     Indication: PSYCHOTIC DISORDER
     Dosage: 16 MG, DAILY
     Route: 048
  3. SEROQUEL [Suspect]
     Indication: PSYCHOTIC DISORDER
     Dosage: 600 MG, UNKNOWN
     Route: 048
  4. KEMADRIN [Suspect]
     Indication: DRUG USE FOR UNKNOWN INDICATION
     Dosage: 5 MG, BID
     Route: 048

REACTIONS (7)
  - DIZZINESS [None]
  - FATIGUE [None]
  - HEART RATE IRREGULAR [None]
  - LISTLESS [None]
  - MUSCLE SPASMS [None]
  - VISUAL ACUITY REDUCED [None]
  - WEIGHT INCREASED [None]
